FAERS Safety Report 17537081 (Version 1)
Quarter: 2020Q1

REPORT INFORMATION
  Report Type: Report from Study
  Country: CA (occurrence: CA)
  Receive Date: 20200313
  Receipt Date: 20200313
  Transmission Date: 20200409
  Serious: Yes (Other)
  Sender: FDA-Public Use
  Company Number: CA-GLAXOSMITHKLINE-CA2020AMR019842

PATIENT
  Sex: Female

DRUGS (1)
  1. MEPOLIZUMAB [Suspect]
     Active Substance: MEPOLIZUMAB
     Indication: ASTHMA
     Dosage: 100 MG, Z (MONTHLY)
     Dates: start: 20171130

REACTIONS (8)
  - Malaise [Unknown]
  - Cardiovascular symptom [Unknown]
  - Dyspnoea [Unknown]
  - Palpitations [Unknown]
  - Pleural effusion [Unknown]
  - Right ventricular failure [Unknown]
  - Peripheral swelling [Unknown]
  - Heart rate increased [Unknown]
